FAERS Safety Report 17325150 (Version 1)
Quarter: 2020Q1

REPORT INFORMATION
  Report Type: Spontaneous
  Country: US (occurrence: US)
  Receive Date: 20200125
  Receipt Date: 20200125
  Transmission Date: 20200409
  Serious: Yes (Disabling)
  Sender: FDA-Public Use
  Company Number: None

PATIENT
  Age: 51 Year
  Sex: Female
  Weight: 72 kg

DRUGS (3)
  1. REGULAR IBUPROFEN [Suspect]
     Active Substance: IBUPROFEN
     Indication: RHEUMATOID ARTHRITIS
  2. MULTIVITAMIN [Concomitant]
     Active Substance: VITAMINS
  3. ARMOUR THYROID [Concomitant]
     Active Substance: THYROID, PORCINE

REACTIONS (12)
  - Constipation [None]
  - Infection [None]
  - Joint swelling [None]
  - Somnolence [None]
  - Musculoskeletal stiffness [None]
  - Vision blurred [None]
  - Vitamin D decreased [None]
  - Gait disturbance [None]
  - Arthralgia [None]
  - Depression [None]
  - Crying [None]
  - Dizziness [None]

NARRATIVE: CASE EVENT DATE: 20190105
